FAERS Safety Report 10011631 (Version 1)
Quarter: 2014Q1

REPORT INFORMATION
  Report Type: Spontaneous
  Country: US (occurrence: US)
  Receive Date: 20140314
  Receipt Date: 20140314
  Transmission Date: 20141002
  Serious: No
  Sender: FDA-Public Use
  Company Number: US-DRREDDYS-USA/USA/13/0034891

PATIENT
  Age: 60 Year
  Sex: Female
  Weight: 116.1 kg

DRUGS (5)
  1. CETIRIZINE 10 MG [Suspect]
     Indication: HYPERSENSITIVITY
     Route: 048
     Dates: start: 20130830, end: 20130923
  2. CYMBALTA [Concomitant]
     Indication: PRODUCT USED FOR UNKNOWN INDICATION
     Route: 065
  3. VALSARTAN/HYDROCHLOROTHIAZIDE [Concomitant]
     Indication: PRODUCT USED FOR UNKNOWN INDICATION
     Route: 065
  4. GLUCOSAMINE/CHONDROITIN [Concomitant]
     Indication: PRODUCT USED FOR UNKNOWN INDICATION
     Route: 065
  5. CRANBERRY [Concomitant]
     Indication: PRODUCT USED FOR UNKNOWN INDICATION
     Route: 065

REACTIONS (1)
  - Memory impairment [Recovered/Resolved]
